FAERS Safety Report 15837472 (Version 2)
Quarter: 2019Q1

REPORT INFORMATION
  Report Type: Report from Study
  Country: IT (occurrence: IT)
  Receive Date: 20190117
  Receipt Date: 20190214
  Transmission Date: 20190417
  Serious: Yes (Other)
  Sender: FDA-Public Use
  Company Number: IT-PFIZER INC-2019019120

PATIENT
  Age: 40 Year
  Sex: Female
  Weight: 55 kg

DRUGS (4)
  1. CARBOPLATIN. [Suspect]
     Active Substance: CARBOPLATIN
     Indication: ENDOMETRIAL CANCER
     Dosage: 400 MG, CYCLIC
     Route: 042
     Dates: start: 20181129, end: 20181220
  2. GEMCITABINE HYDROCHLORIDE. [Concomitant]
     Active Substance: GEMCITABINE HYDROCHLORIDE
     Dosage: 1400 MG, UNK
     Route: 042
     Dates: start: 20181129
  3. DEXAMETHASONE. [Concomitant]
     Active Substance: DEXAMETHASONE
     Dosage: 4 MG, UNK
     Route: 042
     Dates: start: 20181129
  4. GRANISETRON HYDROCHLORIDE. [Concomitant]
     Active Substance: GRANISETRON HYDROCHLORIDE
     Dosage: 3 MG, UNK
     Route: 042
     Dates: start: 20181129

REACTIONS (4)
  - Agitation [Recovering/Resolving]
  - Pruritus [Recovering/Resolving]
  - Vomiting [Recovering/Resolving]
  - Fatigue [Recovering/Resolving]

NARRATIVE: CASE EVENT DATE: 20181220
